FAERS Safety Report 5291190-X (Version None)
Quarter: 2007Q2

REPORT INFORMATION
  Report Type: 
  Country: None (occurrence: None)
  Receive Date: 20070409
  Receipt Date: 20070329
  Transmission Date: 20071010
  Serious: Yes (Other)
  Sender: FDA-Public Use
  Company Number: GB-PFIZER INC-2007026361

PATIENT
  Age: 46 Year
  Sex: Female

DRUGS (1)
  1. DETRUSITOL XL [Suspect]
     Route: 048

REACTIONS (4)
  - ABDOMINAL DISTENSION [None]
  - DEPRESSION [None]
  - HYPERHIDROSIS [None]
  - SUICIDAL IDEATION [None]
